FAERS Safety Report 7065235-0 (Version None)
Quarter: 2010Q4

REPORT INFORMATION
  Report Type: 
  Country: None (occurrence: None)
  Receive Date: 20101027
  Receipt Date: 20101018
  Transmission Date: 20110411
  Serious: Yes (Life-Threatening)
  Sender: FDA-Public Use
  Company Number: US-JNJFOC-20100402327

PATIENT
  Age: 29 Year
  Sex: Female

DRUGS (4)
  1. ULTRAM [Suspect]
     Indication: PRODUCT USED FOR UNKNOWN INDICATION
     Route: 065
  2. CYCLOBENZAPRINE [Suspect]
     Indication: PRODUCT USED FOR UNKNOWN INDICATION
     Dosage: TOTAL DOSE WAS REPORTED AS 64MG
     Route: 065
  3. BENZODIAZEPINE NOS [Suspect]
     Indication: PRODUCT USED FOR UNKNOWN INDICATION
     Route: 065
  4. OXYCODONE HCL AND ACETAMINOPHEN [Concomitant]
     Route: 065

REACTIONS (3)
  - OVERDOSE [None]
  - SUICIDAL BEHAVIOUR [None]
  - UNRESPONSIVE TO STIMULI [None]
